FAERS Safety Report 4837608-5 (Version None)
Quarter: 2005Q4

REPORT INFORMATION
  Report Type: 
  Country: None (occurrence: None)
  Receive Date: 20051024
  Receipt Date: 20050915
  Transmission Date: 20060501
  Serious: No
  Sender: FDA-Public Use
  Company Number: 216592

PATIENT
  Age: 67 Year
  Sex: Male
  Weight: 70 kg

DRUGS (5)
  1. XOLAIR [Suspect]
     Indication: ASTHMA
     Dosage: 15 MG, Q2W, SUBCUTANEOUS
     Route: 058
     Dates: start: 20050201, end: 20050515
  2. SEREVENT [Concomitant]
  3. QVAR (BECLOMETHASONE DIPROPIONATE) [Concomitant]
  4. PROVENTIL (ALBUTEROL, ALBUTEROL SULFATE) [Concomitant]
  5. STEROIDS NOS (STEROID NOS) [Concomitant]

REACTIONS (1)
  - PEMPHIGUS [None]
